FAERS Safety Report 8809762 (Version 1)
Quarter: 2012Q4

REPORT INFORMATION
  Report Type: 
  Country: TW (occurrence: TW)
  Receive Date: 20120926
  Receipt Date: 20120926
  Transmission Date: 20130627
  Serious: Yes (Hospitalization)
  Sender: FDA-Public Use
  Company Number: TW-MYLANLABS-2012S1019218

PATIENT
  Age: 80 Year
  Sex: Female

DRUGS (1)
  1. DICLOFENAC [Suspect]
     Indication: PAIN
     Route: 030

REACTIONS (1)
  - Injection site granuloma [Unknown]
